FAERS Safety Report 5562855-7 (Version None)
Quarter: 2007Q4

REPORT INFORMATION
  Report Type: 
  Country: None (occurrence: None)
  Receive Date: 20071217
  Receipt Date: 20071207
  Transmission Date: 20080405
  Serious: Yes (Hospitalization)
  Sender: FDA-Public Use
  Company Number: JP-JNJFOC-20070900442

PATIENT
  Sex: Male
  Weight: 75 kg

DRUGS (4)
  1. PALIPERIDONE [Suspect]
     Indication: SCHIZOPHRENIA
     Route: 048
  2. EURODIN [Concomitant]
     Indication: SCHIZOPHRENIA
  3. ROHYPNOL [Concomitant]
     Indication: SCHIZOPHRENIA
  4. NADIFLOXACIN [Concomitant]
     Indication: URTICARIA

REACTIONS (1)
  - THIRST [None]
